FAERS Safety Report 6451981-6 (Version None)
Quarter: 2009Q4

REPORT INFORMATION
  Report Type: 
  Country: None (occurrence: None)
  Receive Date: 20091123
  Receipt Date: 20091019
  Transmission Date: 20100525
  Serious: No
  Sender: FDA-Public Use
  Company Number: US-BAYER-200915823BCC

PATIENT
  Age: 46 Year
  Sex: Male
  Weight: 91 kg

DRUGS (3)
  1. ALEVE [Suspect]
     Indication: PAIN
     Dosage: TOTAL DAILY DOSE: 1760 MG  UNIT DOSE: 220 MG
     Route: 048
     Dates: start: 20091017
  2. TYLENOL (CAPLET) [Suspect]
     Indication: PAIN
     Dosage: TOTAL DAILY DOSE: 4 DF  UNIT DOSE: 1 DF
     Route: 065
     Dates: start: 20091017
  3. CAFFEINE TABLETS [Suspect]
     Indication: PAIN
     Dosage: TOTAL DAILY DOSE: 8 DF  UNIT DOSE: 1 DF
     Route: 048
     Dates: start: 20091017

REACTIONS (1)
  - NAUSEA [None]
